FAERS Safety Report 12269677 (Version 3)
Quarter: 2016Q2

REPORT INFORMATION
  Report Type: Spontaneous
  Country: US (occurrence: US)
  Receive Date: 20160414
  Receipt Date: 20160422
  Transmission Date: 20160815
  Serious: No
  Sender: FDA-Public Use
  Company Number: US-TEVA-649868USA

PATIENT
  Sex: Male

DRUGS (1)
  1. QNASL [Suspect]
     Active Substance: BECLOMETHASONE DIPROPIONATE
     Indication: SINUS DISORDER

REACTIONS (11)
  - Head discomfort [Unknown]
  - Malaise [Unknown]
  - Memory impairment [Unknown]
  - Paranasal sinus hypersecretion [Unknown]
  - Adverse event [Unknown]
  - Product contamination [Unknown]
  - Nasal discomfort [Unknown]
  - Upper-airway cough syndrome [Unknown]
  - Headache [Unknown]
  - Aggression [Unknown]
  - Fatigue [Unknown]
